FAERS Safety Report 5733119-3 (Version None)
Quarter: 2008Q2

REPORT INFORMATION
  Report Type: 
  Country: None (occurrence: None)
  Receive Date: 20080509
  Receipt Date: 20080504
  Transmission Date: 20081010
  Serious: Yes (Other)
  Sender: FDA-Public Use
  Company Number: BR-AVENTIS-200814119GDDC

PATIENT
  Age: 59 Year
  Sex: Male
  Weight: 100 kg

DRUGS (5)
  1. PERIDONTIL [Suspect]
     Dosage: DOSE: UNK
     Route: 048
     Dates: start: 20080501
  2. TOPAMAX [Concomitant]
     Dosage: DOSE: UNK
  3. DEPAKOTE [Concomitant]
     Dosage: DOSE: UNK
  4. ATENOL [Concomitant]
     Dosage: DOSE: UNK
  5. PLAVIX [Concomitant]
     Dosage: DOSE: UNK

REACTIONS (3)
  - ALTERED STATE OF CONSCIOUSNESS [None]
  - MEMORY IMPAIRMENT [None]
  - PARALYSIS [None]
